FAERS Safety Report 14744978 (Version 5)
Quarter: 2025Q2

REPORT INFORMATION
  Report Type: Report from Study
  Country: US (occurrence: US)
  Receive Date: 20180411
  Receipt Date: 20250404
  Transmission Date: 20250717
  Serious: Yes (Life-Threatening, Other)
  Sender: MYLAN
  Company Number: US-PFIZER INC-2018144474

PATIENT
  Sex: Female
  Weight: 127.7 kg

DRUGS (1)
  1. PHENYTOIN [Suspect]
     Active Substance: PHENYTOIN
     Indication: Seizure
     Dosage: 100 MILLIGRAM, QD (DAILY)
     Dates: start: 20220403

REACTIONS (4)
  - Drug ineffective [Unknown]
  - Partial seizures [Unknown]
  - Drug level abnormal [Unknown]
  - Product substitution issue [Unknown]
